FAERS Safety Report 16913138 (Version 1)
Quarter: 2019Q4

REPORT INFORMATION
  Report Type: Spontaneous
  Country: FR (occurrence: FR)
  Receive Date: 20191014
  Receipt Date: 20191014
  Transmission Date: 20200122
  Serious: Yes (Hospitalization)
  Sender: FDA-Public Use
  Company Number: FR-TEVA-2019-FR-1120059

PATIENT
  Age: 26 Year
  Sex: Male
  Weight: 52 kg

DRUGS (12)
  1. CISPLATINE MYLAN [Suspect]
     Active Substance: CISPLATIN
     Indication: GERM CELL CANCER
     Route: 042
     Dates: start: 20190624, end: 20190715
  2. FLUCONAZOLE. [Concomitant]
     Active Substance: FLUCONAZOLE
  3. ETOPOSIDE TEVA [Suspect]
     Active Substance: ETOPOSIDE
     Indication: GERM CELL CANCER
     Route: 042
     Dates: start: 20190624, end: 20190715
  4. LEVOTHYROXINE SODIQUE [Concomitant]
     Active Substance: LEVOTHYROXINE SODIUM
  5. IFOSFAMIDE EG [Suspect]
     Active Substance: IFOSFAMIDE
     Indication: GERM CELL CANCER
     Route: 042
     Dates: start: 20190624, end: 20190715
  6. ESOMEPRAZOLE. [Concomitant]
     Active Substance: ESOMEPRAZOLE MAGNESIUM
  7. SERESTA [Concomitant]
     Active Substance: OXAZEPAM
  8. SPECIAFOLDINE [Concomitant]
     Active Substance: FOLIC ACID
  9. DESMOPRESSINE [Concomitant]
     Active Substance: DESMOPRESSIN
  10. HYDROCORTISONE. [Concomitant]
     Active Substance: HYDROCORTISONE
  11. TERCIAN [Concomitant]
     Active Substance: CYAMEMAZINE
  12. POTASSIUM CHLORIDE. [Concomitant]
     Active Substance: POTASSIUM CHLORIDE

REACTIONS (1)
  - Thrombotic microangiopathy [Recovering/Resolving]

NARRATIVE: CASE EVENT DATE: 20190828
